FAERS Safety Report 24370509 (Version 1)
Quarter: 2024Q3

REPORT INFORMATION
  Report Type: Spontaneous
  Country: US (occurrence: US)
  Receive Date: 20240927
  Receipt Date: 20240927
  Transmission Date: 20241016
  Serious: No
  Sender: NOVARTIS
  Company Number: US-002147023-NVSC2024US192103

PATIENT
  Age: 65 Year
  Sex: Female

DRUGS (1)
  1. LEQVIO [Suspect]
     Active Substance: INCLISIRAN SODIUM
     Indication: Hyperlipidaemia
     Dosage: 300 MG (FIRST DOSE, THEN AT MONTH3, THEN EVERY 6 MONTHS)
     Route: 058

REACTIONS (5)
  - Rash [Unknown]
  - Pain [Unknown]
  - Pruritus [Unknown]
  - Induration [Unknown]
  - Injection site rash [Unknown]

NARRATIVE: CASE EVENT DATE: 20240901
